FAERS Safety Report 6948052-9 (Version None)
Quarter: 2010Q3

REPORT INFORMATION
  Report Type: 
  Country: None (occurrence: None)
  Receive Date: 20100828
  Receipt Date: 20091014
  Transmission Date: 20110219
  Serious: No
  Sender: FDA-Public Use
  Company Number: US-ABBOTT-09P-163-0603035-00

PATIENT
  Sex: Female
  Weight: 81.72 kg

DRUGS (4)
  1. NIASPAN [Suspect]
     Indication: BLOOD CHOLESTEROL INCREASED
     Dates: start: 20091002
  2. NIASPAN [Suspect]
     Indication: LOW DENSITY LIPOPROTEIN INCREASED
  3. RED RICE YEAST [Concomitant]
     Indication: BLOOD CHOLESTEROL INCREASED
  4. ASPIRIN [Concomitant]
     Indication: PROPHYLAXIS

REACTIONS (5)
  - BURNING SENSATION [None]
  - ERYTHEMA [None]
  - PARAESTHESIA [None]
  - PRURITUS [None]
  - URTICARIA [None]
